FAERS Safety Report 7036215-6 (Version None)
Quarter: 2010Q4

REPORT INFORMATION
  Report Type: 
  Country: None (occurrence: None)
  Receive Date: 20101008
  Receipt Date: 20100927
  Transmission Date: 20110411
  Serious: Yes (Hospitalization)
  Sender: FDA-Public Use
  Company Number: US-MYLANLABS-2010S1018096

PATIENT
  Age: 28 Year
  Sex: Male

DRUGS (10)
  1. FUROSEMIDE [Suspect]
     Indication: CARDIOMYOPATHY
     Route: 065
  2. FUROSEMIDE [Suspect]
     Route: 042
  3. ENALAPRIL MALEATE [Concomitant]
     Indication: CARDIOMYOPATHY
     Route: 065
  4. METOPROLOL SUCCINATE [Concomitant]
     Indication: CARDIOMYOPATHY
     Route: 065
  5. PANTOPRAZOLE [Concomitant]
     Route: 065
  6. DIGOXIN [Concomitant]
     Indication: CARDIOMYOPATHY
     Route: 065
  7. SPIRONOLACTONE [Concomitant]
     Indication: CARDIOMYOPATHY
     Route: 065
  8. AMOXICILLIN [Concomitant]
     Indication: PHARYNGITIS
     Route: 048
  9. LINCOMYCIN [Concomitant]
     Indication: PHARYNGITIS
     Route: 030
  10. PARACETAMOL [Concomitant]
     Indication: PHARYNGITIS
     Route: 065

REACTIONS (2)
  - BACTERAEMIA [None]
  - STEVENS-JOHNSON SYNDROME [None]
